FAERS Safety Report 17922539 (Version 1)
Quarter: 2020Q2

REPORT INFORMATION
  Report Type: Spontaneous
  Country: US (occurrence: US)
  Receive Date: 20200619
  Receipt Date: 20200619
  Transmission Date: 20200714
  Serious: No
  Sender: FDA-Public Use
  Company Number: None

PATIENT
  Age: 34 Year
  Sex: Male

DRUGS (1)
  1. TRIUMEQ [Suspect]
     Active Substance: ABACAVIR SULFATE\DOLUTEGRAVIR SODIUM\LAMIVUDINE
     Indication: HIV INFECTION
     Dosage: ?          OTHER DOSE:1 DAILY;?
     Route: 048
     Dates: start: 20200415

REACTIONS (4)
  - Dyspnoea [None]
  - Vertigo [None]
  - Loss of personal independence in daily activities [None]
  - Diplopia [None]

NARRATIVE: CASE EVENT DATE: 20200529
